FAERS Safety Report 19179836 (Version 1)
Quarter: 2021Q2

REPORT INFORMATION
  Report Type: Spontaneous
  Country: US (occurrence: US)
  Receive Date: 20210424
  Receipt Date: 20210424
  Transmission Date: 20210717
  Serious: Yes (Life-Threatening, Other)
  Sender: FDA-Public Use
  Company Number: None

PATIENT
  Age: 37 Year
  Sex: Female

DRUGS (2)
  1. MIRENA [Suspect]
     Active Substance: LEVONORGESTREL
  2. PRENATAL [Concomitant]
     Active Substance: VITAMINS

REACTIONS (5)
  - Musculoskeletal stiffness [None]
  - Visual impairment [None]
  - Hydrocephalus [None]
  - Headache [None]
  - Memory impairment [None]
